FAERS Safety Report 13601757 (Version 2)
Quarter: 2017Q3

REPORT INFORMATION
  Report Type: Spontaneous
  Country: JP (occurrence: JP)
  Receive Date: 20170601
  Receipt Date: 20170726
  Transmission Date: 20171127
  Serious: Yes (Hospitalization)
  Sender: FDA-Public Use
  Company Number: JP-ACTELION-A-CH2017-148489

PATIENT
  Age: 43 Year
  Sex: Female

DRUGS (11)
  1. IMURAN [Suspect]
     Active Substance: AZATHIOPRINE
     Indication: SYSTEMIC LUPUS ERYTHEMATOSUS
     Dosage: 50 MG, QD
     Route: 048
  2. ADCIRCA [Concomitant]
     Active Substance: TADALAFIL
  3. LANSOPRAZOLE. [Concomitant]
     Active Substance: LANSOPRAZOLE
  4. ATORVASTATIN [Concomitant]
     Active Substance: ATORVASTATIN
  5. BONOTEO [Concomitant]
     Active Substance: MINODRONIC ACID
  6. OXYGEN. [Concomitant]
     Active Substance: OXYGEN
  7. PREDNISOLONE. [Suspect]
     Active Substance: PREDNISOLONE
     Indication: SYSTEMIC LUPUS ERYTHEMATOSUS
     Dosage: 14 MG, QD
     Route: 048
  8. LOXONIN [Concomitant]
     Active Substance: LOXOPROFEN SODIUM
  9. DIART [Concomitant]
     Active Substance: AZOSEMIDE
  10. ALDACTONE A [Concomitant]
     Active Substance: SPIRONOLACTONE
  11. OPSUMIT [Suspect]
     Active Substance: MACITENTAN
     Indication: PULMONARY ARTERIAL HYPERTENSION
     Dosage: 10 MG, OD
     Route: 048
     Dates: start: 20161221, end: 20170207

REACTIONS (4)
  - Pneumonia [Recovered/Resolved]
  - Haemoglobin decreased [Recovered/Resolved]
  - Pyrexia [Recovered/Resolved]
  - Right ventricular failure [Recovered/Resolved]

NARRATIVE: CASE EVENT DATE: 20170102
